FAERS Safety Report 23826144 (Version 1)
Quarter: 2024Q2

REPORT INFORMATION
  Report Type: Spontaneous
  Country: US (occurrence: None)
  Receive Date: 20240506
  Receipt Date: 20240506
  Transmission Date: 20240716
  Serious: Yes (Other)
  Sender: FDA-Public Use
  Company Number: None

PATIENT
  Age: 22 Year
  Sex: Male
  Weight: 90 kg

DRUGS (1)
  1. MONTELUKAST SODIUM [Suspect]
     Active Substance: MONTELUKAST SODIUM
     Indication: Sinus disorder
     Dosage: OTHER QUANTITY : 1 TABLET(S);?FREQUENCY : AT BEDTIME;?
     Route: 048
     Dates: start: 20230530, end: 20240411

REACTIONS (17)
  - Insomnia [None]
  - Abnormal dreams [None]
  - Nightmare [None]
  - Irritability [None]
  - Agitation [None]
  - Hallucination [None]
  - Depression [None]
  - Aggression [None]
  - Dysarthria [None]
  - Restlessness [None]
  - Repetitive speech [None]
  - Obsessive-compulsive symptom [None]
  - Memory impairment [None]
  - Disturbance in attention [None]
  - Disorientation [None]
  - Confusional state [None]
  - Anxiety [None]

NARRATIVE: CASE EVENT DATE: 20240410
